FAERS Safety Report 9622582 (Version 2)
Quarter: 2013Q4

REPORT INFORMATION
  Report Type: Spontaneous
  Country: US (occurrence: None)
  Receive Date: 20131010
  Receipt Date: 20131016
  Transmission Date: 20140711
  Serious: Yes (Congenital Anomaly)
  Sender: FDA-Public Use
  Company Number: ADR-2013UNK158

PATIENT
  Sex: 0

DRUGS (6)
  1. LAMIVUDINE AND ZIDOVUDINE [Suspect]
     Indication: ACQUIRED IMMUNODEFICIENCY SYNDROME
     Dosage: 2 TABS/DAY
  2. ZIDOVUDINE [Suspect]
     Indication: ACQUIRED IMMUNODEFICIENCY SYNDROME
  3. PREZISTA [Concomitant]
  4. LEXIVA [Concomitant]
  5. NORVIR [Concomitant]
  6. VIREAD [Concomitant]

REACTIONS (2)
  - Micrognathia [None]
  - Foetal exposure during pregnancy [None]
